FAERS Safety Report 8396409-4 (Version None)
Quarter: 2012Q2

REPORT INFORMATION
  Report Type: 
  Country: None (occurrence: None)
  Receive Date: 20120530
  Receipt Date: 20120524
  Transmission Date: 20120825
  Serious: Yes (Disabling, Other)
  Sender: FDA-Public Use
  Company Number: US-MERCK-1007USA00521

PATIENT
  Age: 57 Year
  Sex: Female
  Weight: 60 kg

DRUGS (4)
  1. FOSAMAX [Suspect]
     Route: 048
     Dates: start: 20000720, end: 20001101
  2. FOSAMAX [Suspect]
     Route: 048
     Dates: start: 20000101, end: 20060101
  3. FOSAMAX [Suspect]
     Indication: OSTEOPOROSIS
     Route: 048
     Dates: start: 20000101, end: 20000101
  4. BONIVA [Suspect]
     Indication: OSTEOPOROSIS
     Route: 048
     Dates: start: 20060101, end: 20080101

REACTIONS (26)
  - OVERDOSE [None]
  - SPINAL OSTEOARTHRITIS [None]
  - JAW DISORDER [None]
  - LYMPHADENOPATHY [None]
  - TOOTH FRACTURE [None]
  - GINGIVAL DISORDER [None]
  - EXOSTOSIS [None]
  - ANXIETY [None]
  - PULPITIS DENTAL [None]
  - INFLAMMATION [None]
  - ADVERSE DRUG REACTION [None]
  - SCOLIOSIS [None]
  - LYMPHADENITIS [None]
  - OSTEOARTHRITIS [None]
  - DRUG INEFFECTIVE [None]
  - PANCREATITIS ACUTE [None]
  - LIMB INJURY [None]
  - ALVEOLAR OSTEITIS [None]
  - GASTROINTESTINAL DISORDER [None]
  - DIVERTICULUM INTESTINAL [None]
  - ATELECTASIS [None]
  - BONE DENSITY DECREASED [None]
  - ARTHROPATHY [None]
  - OSTEONECROSIS OF JAW [None]
  - IMPAIRED HEALING [None]
  - TOOTH DISORDER [None]
